FAERS Safety Report 5149620-X (Version None)
Quarter: 2006Q4

REPORT INFORMATION
  Report Type: 
  Country: None (occurrence: None)
  Receive Date: 20061113
  Receipt Date: 20060619
  Transmission Date: 20070319
  Serious: No
  Sender: FDA-Public Use
  Company Number: US-GLAXOSMITHKLINE-A0609551A

PATIENT
  Age: 77 Year
  Sex: Female

DRUGS (8)
  1. COREG [Suspect]
     Dosage: 6.25MG TWICE PER DAY
     Route: 048
     Dates: start: 20060607
  2. COZAAR [Concomitant]
  3. SYNTHROID [Concomitant]
  4. NAMENDA [Concomitant]
  5. ARICEPT [Concomitant]
  6. ASCORBIC ACID [Concomitant]
  7. PERCOCET [Concomitant]
  8. DARVOCET [Concomitant]

REACTIONS (2)
  - DIZZINESS [None]
  - FALL [None]
